FAERS Safety Report 20843221 (Version 1)
Quarter: 2022Q2

REPORT INFORMATION
  Report Type: Spontaneous
  Country: US (occurrence: US)
  Receive Date: 20220518
  Receipt Date: 20220518
  Transmission Date: 20220720
  Serious: Yes (Death, Hospitalization, Other)
  Sender: FDA-Public Use
  Company Number: US-GYP-001064

PATIENT
  Age: 28 Year
  Sex: Male

DRUGS (4)
  1. PREDNISONE [Suspect]
     Active Substance: PREDNISONE
     Indication: Hypercalcaemia
     Route: 065
  2. PAMIDRONATE [Suspect]
     Active Substance: PAMIDRONATE DISODIUM
     Indication: Hypercalcaemia
     Route: 042
  3. PREDNISONE [Suspect]
     Active Substance: PREDNISONE
     Indication: Neuroendocrine carcinoma
     Route: 065
  4. PAMIDRONATE [Suspect]
     Active Substance: PAMIDRONATE DISODIUM
     Indication: Neuroendocrine carcinoma
     Route: 042

REACTIONS (8)
  - Metastases to liver [Unknown]
  - Neoplasm progression [Unknown]
  - Drug ineffective [Unknown]
  - Fall [Fatal]
  - Seizure like phenomena [Unknown]
  - Subarachnoid haemorrhage [Fatal]
  - Pneumonia [Unknown]
  - Product use in unapproved indication [Unknown]
